FAERS Safety Report 10529728 (Version 2)
Quarter: 2014Q4

REPORT INFORMATION
  Report Type: Spontaneous
  Country: US (occurrence: None)
  Receive Date: 20141017
  Receipt Date: 20141222
  Transmission Date: 20150528
  Serious: Yes (Life-Threatening, Hospitalization, Disabling, Other)
  Sender: FDA-Public Use
  Company Number: 1713747-2014-999170

PATIENT
  Age: 27 Year
  Sex: Male

DRUGS (1)
  1. DELFLEX WITH DEXTROSE 1.5% LOW MAGNESIUM LOW CALCIUM [Suspect]
     Active Substance: CALCIUM CHLORIDE\DEXTROSE MONOHYDRATE\MAGNESIUM CHLORIDE\SODIUM CHLORIDE\SODIUM LACTATE
     Indication: PERITONEAL DIALYSIS

REACTIONS (18)
  - Hypertension [None]
  - Pyelonephritis [None]
  - Metabolic acidosis [None]
  - Cold sweat [None]
  - Haematoma [None]
  - Device related infection [None]
  - Haemorrhage [None]
  - Hypotension [None]
  - Peritonitis bacterial [None]
  - Fungal peritonitis [None]
  - Pain [None]
  - Anxiety [None]
  - Peritonitis [None]
  - Renal haematoma [None]
  - Chronic kidney disease [None]
  - Sepsis [None]
  - Headache [None]
  - Salivary hypersecretion [None]

NARRATIVE: CASE EVENT DATE: 20070318
